FAERS Safety Report 9404329 (Version 3)
Quarter: 2014Q3

REPORT INFORMATION
  Report Type: Spontaneous
  Country: US (occurrence: US)
  Receive Date: 20130717
  Receipt Date: 20140729
  Transmission Date: 20150326
  Serious: Yes (Hospitalization)
  Sender: FDA-Public Use
  Company Number: US-BAYER-2013-085282

PATIENT
  Age: 28 Year
  Sex: Female
  Weight: 57.6 kg

DRUGS (2)
  1. MIRENA [Suspect]
     Active Substance: LEVONORGESTREL
     Indication: CONTRACEPTION
     Dosage: 20 MCG/24HR, CONT
     Route: 015
     Dates: start: 20100419, end: 20130214
  2. DEPO-PROVERA [Concomitant]
     Active Substance: MEDROXYPROGESTERONE ACETATE

REACTIONS (8)
  - Endometriosis [None]
  - Injury [None]
  - Anxiety [None]
  - Device issue [None]
  - Pelvic pain [None]
  - Uterine perforation [None]
  - Depression [None]
  - Emotional distress [None]

NARRATIVE: CASE EVENT DATE: 2013
